FAERS Safety Report 7236557-5 (Version None)
Quarter: 2011Q1

REPORT INFORMATION
  Report Type: 
  Country: None (occurrence: None)
  Receive Date: 20110120
  Receipt Date: 20110110
  Transmission Date: 20110831
  Serious: Yes (Other)
  Sender: FDA-Public Use
  Company Number: US-PURDUE-USA-2010-0048683

PATIENT
  Sex: Male

DRUGS (1)
  1. OXYCONTIN [Suspect]
     Indication: PRODUCT USED FOR UNKNOWN INDICATION
     Dosage: 60 MG, Q12H
     Route: 048
     Dates: start: 20100919

REACTIONS (9)
  - LACRIMATION INCREASED [None]
  - RETCHING [None]
  - FOOT OPERATION [None]
  - GANGRENE [None]
  - DRUG WITHDRAWAL SYNDROME [None]
  - NAUSEA [None]
  - DIARRHOEA [None]
  - VOMITING [None]
  - DRUG INEFFECTIVE [None]
